FAERS Safety Report 10307388 (Version 1)
Quarter: 2014Q3

REPORT INFORMATION
  Report Type: Spontaneous
  Country: CA (occurrence: None)
  Receive Date: 20140714
  Receipt Date: 20140714
  Transmission Date: 20150326
  Serious: Yes (Hospitalization)
  Sender: FDA-Public Use
  Company Number: None

PATIENT
  Age: 38 Year
  Sex: Female
  Weight: 106.7 kg

DRUGS (1)
  1. IDARUBICIN [Suspect]
     Active Substance: IDARUBICIN
     Dosage: 36 MG 07/01/2014
     Dates: start: 20140701

REACTIONS (3)
  - Intestinal ischaemia [None]
  - Sepsis [None]
  - Cardiac arrest [None]

NARRATIVE: CASE EVENT DATE: 20140708
